FAERS Safety Report 12670420 (Version 1)
Quarter: 2016Q3

REPORT INFORMATION
  Report Type: Spontaneous
  Country: GB (occurrence: GB)
  Receive Date: 20160822
  Receipt Date: 20160822
  Transmission Date: 20161109
  Serious: Yes (Other)
  Sender: FDA-Public Use
  Company Number: GB-GLAXOSMITHKLINE-GB2016GSK118971

PATIENT
  Sex: Male

DRUGS (2)
  1. VENTOLIN [Concomitant]
     Active Substance: ALBUTEROL SULFATE
     Indication: ASTHMA
  2. RELVAR ELLIPTA [Suspect]
     Active Substance: FLUTICASONE FUROATE\VILANTEROL TRIFENATATE
     Indication: ASTHMA
     Dosage: 1 PUFF(S), QD
     Dates: start: 2016, end: 20160812

REACTIONS (6)
  - Mouth ulceration [Unknown]
  - Tremor [Unknown]
  - Abdominal pain [Unknown]
  - Pancreatitis [Unknown]
  - Hyperglycaemia [Unknown]
  - Asthenia [Unknown]

NARRATIVE: CASE EVENT DATE: 2016
